FAERS Safety Report 8168285-6 (Version None)
Quarter: 2012Q1

REPORT INFORMATION
  Report Type: 
  Country: None (occurrence: None)
  Receive Date: 20120227
  Receipt Date: 20120221
  Transmission Date: 20120608
  Serious: Yes (Other)
  Sender: FDA-Public Use
  Company Number: US-MERCK-1202USA03517

PATIENT
  Age: 55 Year
  Sex: Female

DRUGS (2)
  1. BONIVA [Suspect]
     Route: 065
     Dates: start: 20060101, end: 20100501
  2. FOSAMAX [Suspect]
     Route: 048
     Dates: start: 20010101, end: 20060501

REACTIONS (2)
  - FEMUR FRACTURE [None]
  - LOW TURNOVER OSTEOPATHY [None]
